FAERS Safety Report 6929745-6 (Version None)
Quarter: 2010Q3

REPORT INFORMATION
  Report Type: 
  Country: None (occurrence: None)
  Receive Date: 20100813
  Receipt Date: 20100803
  Transmission Date: 20110219
  Serious: Yes (Death)
  Sender: FDA-Public Use
  Company Number: 2010EU003713

PATIENT
  Age: 53 Year
  Sex: Male
  Weight: 70 kg

DRUGS (2)
  1. MYCAMINE [Suspect]
     Indication: SYSTEMIC CANDIDA
     Dosage: 100 MG, UID/QD, IV NOS
     Route: 042
     Dates: start: 20100525, end: 20100610
  2. FLUCYTOSINE (FLUCYTOSINE) [Concomitant]

REACTIONS (3)
  - DRUG INEFFECTIVE [None]
  - MULTI-ORGAN FAILURE [None]
  - SEPTIC SHOCK [None]
